FAERS Safety Report 7767413-1 (Version None)
Quarter: 2011Q3

REPORT INFORMATION
  Report Type: 
  Country: None (occurrence: None)
  Receive Date: 20110922
  Receipt Date: 20100816
  Transmission Date: 20111222
  Serious: No
  Sender: FDA-Public Use
  Company Number: US-ASTRAZENECA-2010SE38476

PATIENT
  Sex: Female

DRUGS (1)
  1. SEROQUEL XR [Suspect]
     Route: 048
     Dates: start: 20100805, end: 20100812

REACTIONS (3)
  - MENTAL IMPAIRMENT [None]
  - DEPRESSED MOOD [None]
  - DRUG DOSE OMISSION [None]
